FAERS Safety Report 5380436-5 (Version None)
Quarter: 2007Q3

REPORT INFORMATION
  Report Type: 
  Country: None (occurrence: None)
  Receive Date: 20070706
  Receipt Date: 20070530
  Transmission Date: 20080115
  Serious: No
  Sender: FDA-Public Use
  Company Number: A0653478A

PATIENT
  Age: 75 Year
  Sex: Female

DRUGS (7)
  1. TYKERB [Suspect]
     Indication: BREAST CANCER
     Dosage: 5TAB PER DAY
     Route: 048
     Dates: start: 20070419
  2. XELODA [Concomitant]
  3. MULTI-VITAMIN [Concomitant]
  4. CALCIUM GLUCONATE [Concomitant]
  5. ASPIRIN [Concomitant]
  6. B6 [Concomitant]
  7. PROVIGIL [Concomitant]

REACTIONS (3)
  - DIARRHOEA [None]
  - FATIGUE [None]
  - PAIN IN EXTREMITY [None]
